FAERS Safety Report 23522627 (Version 1)
Quarter: 2024Q1

REPORT INFORMATION
  Report Type: Other
  Country: IR (occurrence: IR)
  Receive Date: 20240214
  Receipt Date: 20240214
  Transmission Date: 20240410
  Serious: Yes (Hospitalization, Other)
  Sender: FDA-Public Use
  Company Number: IR-B.Braun Medical Inc.-2153202

PATIENT
  Age: 15 Year
  Sex: Male

DRUGS (1)
  1. MEROPENEM AND SODIUM CHLORIDE [Suspect]
     Active Substance: MEROPENEM\SODIUM CHLORIDE

REACTIONS (9)
  - Haemoglobin decreased [Unknown]
  - Thrombocytopenia [Unknown]
  - Jaundice [Unknown]
  - Biliary obstruction [Unknown]
  - Blood bilirubin increased [Unknown]
  - Gamma-glutamyltransferase increased [Unknown]
  - Blood alkaline phosphatase increased [Unknown]
  - Alanine aminotransferase increased [Unknown]
  - Aspartate aminotransferase increased [Unknown]
